FAERS Safety Report 6074924-6 (Version None)
Quarter: 2009Q1

REPORT INFORMATION
  Report Type: 
  Country: None (occurrence: None)
  Receive Date: 20090210
  Receipt Date: 20090126
  Transmission Date: 20090719
  Serious: Yes (Other)
  Sender: FDA-Public Use
  Company Number: 09-000161

PATIENT

DRUGS (1)
  1. FEMCON FE     (NORETHINDRONE, ETHINYL ESTRADIOL) , 0.4MG/35MCG [Suspect]
     Dosage: TRANSPLACENTAL
     Route: 064

REACTIONS (2)
  - ABORTION SPONTANEOUS [None]
  - MATERNAL DRUGS AFFECTING FOETUS [None]
